FAERS Safety Report 4712866-6 (Version None)
Quarter: 2005Q3

REPORT INFORMATION
  Report Type: 
  Country: None (occurrence: None)
  Receive Date: 20050712
  Receipt Date: 20050712
  Transmission Date: 20060218
  Serious: Yes (Hospitalization)
  Sender: FDA-Public Use
  Company Number: None

PATIENT
  Age: 54 Year
  Sex: Male
  Weight: 56.5 kg

DRUGS (13)
  1. ZYVOX [Suspect]
     Indication: CENTRAL LINE INFECTION
     Dosage: 600 MG  TWICE DAILY  ORAL
     Route: 048
     Dates: start: 20050614, end: 20050627
  2. ZYVOX [Suspect]
     Indication: ENTEROCOCCAL INFECTION
     Dosage: 600 MG  TWICE DAILY  ORAL
     Route: 048
     Dates: start: 20050614, end: 20050627
  3. ARANESP [Concomitant]
  4. CARDIZEM CD [Concomitant]
  5. HUMALOG [Concomitant]
  6. LANTUS [Concomitant]
  7. FLAGYL [Concomitant]
  8. PROTONIX [Concomitant]
  9. PROGRAF [Concomitant]
  10. PREDNISONE [Concomitant]
  11. ZEMPLAR [Concomitant]
  12. THIAMINE [Concomitant]
  13. ALBEE WITH C [Concomitant]

REACTIONS (1)
  - PLATELET COUNT DECREASED [None]
